FAERS Safety Report 17970164 (Version 1)
Quarter: 2020Q3

REPORT INFORMATION
  Report Type: Spontaneous
  Country: US (occurrence: US)
  Receive Date: 20200701
  Receipt Date: 20200701
  Transmission Date: 20201103
  Serious: Yes (Other)
  Sender: FDA-Public Use
  Company Number: US-MAYNE PHARMA-2020MYN000305

PATIENT

DRUGS (1)
  1. TAMOXIFEN CITRATE. [Suspect]
     Active Substance: TAMOXIFEN CITRATE
     Indication: HYPERPLASIA
     Route: 048

REACTIONS (6)
  - Menopause [Unknown]
  - Hysterectomy [Unknown]
  - Oophorectomy [Unknown]
  - Artificial menopause [Unknown]
  - Ovarian rupture [Unknown]
  - Product use in unapproved indication [Unknown]
